FAERS Safety Report 21585148 (Version 1)
Quarter: 2022Q4

REPORT INFORMATION
  Report Type: Report from Study
  Country: IT (occurrence: IT)
  Receive Date: 20221111
  Receipt Date: 20221111
  Transmission Date: 20230112
  Serious: Yes (Death, Hospitalization, Other)
  Sender: FDA-Public Use
  Company Number: IT-CELGENE-ITA-20200202754

PATIENT
  Age: 58 Year
  Sex: Female
  Weight: 48 kg

DRUGS (2)
  1. ABRAXANE [Suspect]
     Active Substance: PACLITAXEL
     Indication: Ductal adenocarcinoma of pancreas
     Dosage: FREQUENCY TEXT: NOT  PROVIDED?DURATION TEXT : CYCLE5 DAY2
     Route: 042
     Dates: start: 20181130, end: 20190426
  2. GEMCITABINE [Suspect]
     Active Substance: GEMCITABINE
     Indication: Ductal adenocarcinoma of pancreas
     Dosage: FREQUENCY TEXT: NOT PROVIDED?DURATION TEXT : CYCLE 5 DAY 2
     Route: 065
     Dates: start: 20181130, end: 20190426

REACTIONS (2)
  - Duodenal stenosis [Fatal]
  - Addison^s disease [Unknown]

NARRATIVE: CASE EVENT DATE: 20190601
